FAERS Safety Report 7301187-3 (Version None)
Quarter: 2011Q1

REPORT INFORMATION
  Report Type: 
  Country: None (occurrence: None)
  Receive Date: 20110112
  Receipt Date: 20090617
  Transmission Date: 20110831
  Serious: Yes (Other)
  Sender: FDA-Public Use
  Company Number: THYM-1001057

PATIENT
  Age: 57 Year
  Sex: Female

DRUGS (10)
  1. METHYLPREDNISOLONE [Concomitant]
  2. BACTRIM [Concomitant]
  3. THYMOGLOBULIN [Suspect]
  4. THYMOGLOBULIN [Suspect]
     Indication: PROPHYLAXIS AGAINST TRANSPLANT REJECTION
     Dosage: 1.25 MG/KG, INTRAVENOUS
     Route: 042
     Dates: start: 20090512, end: 20090514
  5. BENADRYL [Concomitant]
  6. VANCOMYCIN [Concomitant]
  7. ACETAMINOPHEN [Concomitant]
  8. SOLU-MEDROL [Concomitant]
  9. TACROLIMUS [Concomitant]
  10. MYCOPHENOLATE MOFETIL (MYCOHENOLATE MOFETIL) [Concomitant]

REACTIONS (3)
  - PYREXIA [None]
  - PULMONARY OEDEMA [None]
  - DRUG SPECIFIC ANTIBODY PRESENT [None]
